FAERS Safety Report 5672798-6 (Version None)
Quarter: 2008Q1

REPORT INFORMATION
  Report Type: 
  Country: None (occurrence: None)
  Receive Date: 20080319
  Receipt Date: 20070716
  Transmission Date: 20080703
  Serious: No
  Sender: FDA-Public Use
  Company Number: US-KINGPHARMUSA00001-K200700895

PATIENT

DRUGS (4)
  1. ALTACE [Suspect]
     Indication: CARDIAC DISORDER
     Dosage: 5 MG, QD
     Route: 048
     Dates: start: 20070101, end: 20070713
  2. METOPROLOL TARTRATE [Concomitant]
  3. ASPIRIN [Concomitant]
  4. LIPITOR [Concomitant]

REACTIONS (2)
  - COUGH [None]
  - VENTRICULAR EXTRASYSTOLES [None]
